FAERS Safety Report 19828715 (Version 2)
Quarter: 2021Q4

REPORT INFORMATION
  Report Type: Spontaneous
  Country: US (occurrence: US)
  Receive Date: 20210914
  Receipt Date: 20211224
  Transmission Date: 20220303
  Serious: No
  Sender: FDA-Public Use
  Company Number: US-GW PHARMA-202109USGW04357

PATIENT

DRUGS (5)
  1. EPIDIOLEX [Suspect]
     Active Substance: CANNABIDIOL
     Indication: Lennox-Gastaut syndrome
     Dosage: 300 MILLIGRAM, BID
     Route: 048
     Dates: start: 202006, end: 2020
  2. EPIDIOLEX [Suspect]
     Active Substance: CANNABIDIOL
     Indication: Seizure
     Dosage: 650 MILLIGRAM, QD (300 MG IN THE MORNING AND 350 MG IN THE EVENING)
     Route: 048
     Dates: start: 2020
  3. EPIDIOLEX [Suspect]
     Active Substance: CANNABIDIOL
     Dosage: UNK
     Route: 048
     Dates: start: 202109
  4. EPIDIOLEX [Suspect]
     Active Substance: CANNABIDIOL
     Dosage: 11.5 MG/KG/DAY, 300 MILLIGRAM, BID FOR A WEEK
     Route: 048
     Dates: start: 202109
  5. EPIDIOLEX [Suspect]
     Active Substance: CANNABIDIOL
     Dosage: 12.46MG/KG/DAY, 650 MILLIGRAM, QD (300 MG IN THE MORNING AND 350 MG IN THE EVENING THEREAFTER))
     Route: 048

REACTIONS (4)
  - Weight abnormal [Unknown]
  - Emergency care [Unknown]
  - Weight increased [Unknown]
  - Therapy change [Unknown]
